FAERS Safety Report 26053573 (Version 1)
Quarter: 2025Q4

REPORT INFORMATION
  Report Type: Spontaneous
  Country: US (occurrence: None)
  Receive Date: 20251116
  Receipt Date: 20251116
  Transmission Date: 20260118
  Serious: Yes (Other)
  Sender: FDA-CTU
  Company Number: None

PATIENT
  Age: 40 Year
  Sex: Female
  Weight: 74.25 kg

DRUGS (1)
  1. BPC-157 [Suspect]
     Active Substance: BPC-157
     Indication: Joint injury
     Dosage: TWICE A DAY SUBCUTANEOUS?
     Route: 058
     Dates: start: 20250915, end: 20250924

REACTIONS (8)
  - Suspected product contamination [None]
  - Gingival hyperpigmentation [None]
  - Flushing [None]
  - Ephelides [None]
  - Skin discolouration [None]
  - Hot flush [None]
  - Erythema [None]
  - Lip discolouration [None]
